FAERS Safety Report 19256753 (Version 1)
Quarter: 2021Q2

REPORT INFORMATION
  Report Type: Spontaneous
  Country: US (occurrence: US)
  Receive Date: 20210514
  Receipt Date: 20210514
  Transmission Date: 20210717
  Serious: No
  Sender: FDA-Public Use
  Company Number: US-TEVA-2021-US-1903504

PATIENT
  Age: 61 Year
  Sex: Female
  Weight: 88.45 kg

DRUGS (1)
  1. ANASTROZOLE. [Suspect]
     Active Substance: ANASTROZOLE
     Dosage: FROM 5 YEARS
     Route: 065

REACTIONS (12)
  - Product confusion [Unknown]
  - Dyskinesia [Unknown]
  - Hypoaesthesia [Unknown]
  - Hand deformity [Unknown]
  - Tendon disorder [Unknown]
  - Arthropathy [Unknown]
  - Muscle disorder [Unknown]
  - Arthralgia [Unknown]
  - Grip strength decreased [Unknown]
  - Osteoarthritis [Unknown]
  - Wrong product administered [Unknown]
  - Musculoskeletal stiffness [Unknown]

NARRATIVE: CASE EVENT DATE: 202001
